FAERS Safety Report 11474292 (Version 1)
Quarter: 2015Q3

REPORT INFORMATION
  Report Type: Spontaneous
  Country: US (occurrence: None)
  Receive Date: 20150908
  Receipt Date: 20150908
  Transmission Date: 20151125
  Serious: Yes (Disabling, Other)
  Sender: FDA-Public Use
  Company Number: None

PATIENT
  Age: 60 Year
  Sex: Male
  Weight: 136.08 kg

DRUGS (7)
  1. ZYRTEC [Concomitant]
     Active Substance: CETIRIZINE HYDROCHLORIDE
  2. WARFARIN [Concomitant]
     Active Substance: WARFARIN
  3. NICODERM CQ [Suspect]
     Active Substance: NICOTINE
     Indication: SMOKING CESSATION THERAPY
     Dosage: 1 PATCH TOPICALLY?ONCE DAILY?APPLIED AS MEDICATED PATCH TO SKIN
     Route: 061
     Dates: start: 20150730, end: 20150806
  4. TRAZODONE [Concomitant]
     Active Substance: TRAZODONE HYDROCHLORIDE
  5. FUROSEMIDE. [Concomitant]
     Active Substance: FUROSEMIDE
  6. DIGOXIN. [Concomitant]
     Active Substance: DIGOXIN
  7. METOPROLOL [Concomitant]
     Active Substance: METOPROLOL

REACTIONS (6)
  - Swelling [None]
  - Skin lesion [None]
  - Secretion discharge [None]
  - Pruritus [None]
  - Erythema [None]
  - Skin warm [None]

NARRATIVE: CASE EVENT DATE: 20150730
